FAERS Safety Report 13438452 (Version 1)
Quarter: 2017Q2

REPORT INFORMATION
  Report Type: Spontaneous
  Country: US (occurrence: US)
  Receive Date: 20170412
  Receipt Date: 20170412
  Transmission Date: 20170830
  Serious: No
  Sender: FDA-Public Use
  Company Number: US-SA-2017SA035532

PATIENT
  Age: 70 Year
  Sex: Female

DRUGS (4)
  1. ALLEGRA ALLERGY [Suspect]
     Active Substance: FEXOFENADINE HYDROCHLORIDE
     Indication: SEASONAL ALLERGY
     Dosage: 90S
     Route: 065
  2. ALLEGRA ALLERGY [Suspect]
     Active Substance: FEXOFENADINE HYDROCHLORIDE
     Indication: ALLERGY TO PLANTS
     Dosage: 90S
     Route: 065
  3. GAVISCON [Concomitant]
     Active Substance: ALUMINUM HYDROXIDE\MAGNESIUM CARBONATE
     Indication: FLATULENCE
     Route: 065
  4. PRILOSEC [Concomitant]
     Active Substance: OMEPRAZOLE MAGNESIUM
     Indication: FLATULENCE
     Route: 065

REACTIONS (1)
  - Drug intolerance [Unknown]
